FAERS Safety Report 9250837 (Version 1)
Quarter: 2013Q1

REPORT INFORMATION
  Report Type: Spontaneous
  Country: US (occurrence: None)
  Receive Date: 20130305
  Receipt Date: 20130305
  Transmission Date: 20140127
  Serious: Yes (Hospitalization, Other)
  Sender: FDA-Public Use
  Company Number: 163-21880-12071213

PATIENT
  Age: 71 Year
  Sex: Male
  Weight: 70.31 kg

DRUGS (9)
  1. REVLIMID (LENALIDOMIDE) (CAPSULES) [Suspect]
     Indication: PLASMA CELL MYELOMA
     Dosage: 2 TABS TUES, THURS + SAT AFTER DIALYSIS
     Dates: start: 20120623, end: 20120625
  2. OXYCODONE [Concomitant]
  3. GLIMEPIRIDE [Concomitant]
  4. METOPROLOL [Concomitant]
  5. RENVELA (SEVELAMER CARBONATE) [Concomitant]
  6. DOCUSATE [Concomitant]
  7. MULTIVITAMINS [Concomitant]
  8. FERROUS SULFATE [Concomitant]
  9. FISH OIL [Concomitant]

REACTIONS (3)
  - Blood glucose decreased [None]
  - Loss of consciousness [None]
  - Hypotension [None]
